FAERS Safety Report 12897120 (Version 4)
Quarter: 2017Q1

REPORT INFORMATION
  Report Type: Spontaneous
  Country: CA (occurrence: CA)
  Receive Date: 20161031
  Receipt Date: 20170303
  Transmission Date: 20170428
  Serious: Yes (Other)
  Sender: FDA-Public Use
  Company Number: CA-PFIZER INC-2016435981

PATIENT
  Age: 61 Year
  Sex: Male
  Weight: 126 kg

DRUGS (5)
  1. SUTENT [Suspect]
     Active Substance: SUNITINIB MALATE
     Dosage: 25 MG, NIGHTLY (FOR 23 WEEKS AT A TIME)
     Dates: start: 2016
  2. SUTENT [Suspect]
     Active Substance: SUNITINIB MALATE
     Dosage: 25 MG, CYCLIC (14 DAYS ON AND 7 DAYS OFF)
     Dates: start: 201608
  3. SUTENT [Suspect]
     Active Substance: SUNITINIB MALATE
     Indication: METASTATIC RENAL CELL CARCINOMA
     Dosage: UNK
     Dates: start: 2005
  4. SUTENT [Suspect]
     Active Substance: SUNITINIB MALATE
     Dosage: 37.5 MG, UNK
     Dates: start: 2016, end: 2016
  5. SUTENT [Suspect]
     Active Substance: SUNITINIB MALATE
     Dosage: 50 MG, UNK
     Dates: start: 2016, end: 2016

REACTIONS (24)
  - Blister [Recovered/Resolved]
  - Myocardial infarction [Unknown]
  - Neoplasm progression [Not Recovered/Not Resolved]
  - Fibromyalgia [Unknown]
  - Thrombosis [Not Recovered/Not Resolved]
  - Phlebitis deep [Unknown]
  - Appetite disorder [Unknown]
  - Dyspepsia [Unknown]
  - Deafness [Unknown]
  - Muscle spasms [Not Recovered/Not Resolved]
  - Fatigue [Not Recovered/Not Resolved]
  - Pain [Not Recovered/Not Resolved]
  - Agitation [Unknown]
  - Nocturia [Unknown]
  - Diverticulitis [Not Recovered/Not Resolved]
  - Chills [Unknown]
  - Neck pain [Unknown]
  - Decreased appetite [Not Recovered/Not Resolved]
  - Pulmonary embolism [Unknown]
  - Malaise [Not Recovered/Not Resolved]
  - Mood swings [Unknown]
  - Pain in extremity [Unknown]
  - Headache [Unknown]
  - Blood pressure abnormal [Not Recovered/Not Resolved]
